FAERS Safety Report 8562628-7 (Version None)
Quarter: 2012Q3

REPORT INFORMATION
  Report Type: 
  Country: None (occurrence: None)
  Receive Date: 20120802
  Receipt Date: 20120710
  Transmission Date: 20120928
  Serious: No
  Sender: FDA-Public Use
  Company Number: US-AMGEN-USASP2012042671

PATIENT
  Age: 62 Year
  Sex: Male

DRUGS (3)
  1. METHOTREXATE [Concomitant]
     Dosage: UNK
  2. ENBREL [Suspect]
     Indication: RHEUMATOID ARTHRITIS
     Dosage: 50 MG, QWK
     Dates: start: 20111201
  3. LEFLUNOMIDE [Concomitant]
     Dosage: 1 MG, UNK
     Dates: start: 20120601

REACTIONS (8)
  - DISORIENTATION [None]
  - MOBILITY DECREASED [None]
  - OEDEMA PERIPHERAL [None]
  - SWELLING [None]
  - CONTUSION [None]
  - RHEUMATOID ARTHRITIS [None]
  - AGITATION [None]
  - UPPER RESPIRATORY TRACT INFECTION [None]
